FAERS Safety Report 7158428-5 (Version None)
Quarter: 2010Q4

REPORT INFORMATION
  Report Type: 
  Country: None (occurrence: None)
  Receive Date: 20101214
  Receipt Date: 20100618
  Transmission Date: 20110411
  Serious: No
  Sender: FDA-Public Use
  Company Number: US-ASTRAZENECA-2010SE26307

PATIENT
  Age: 68 Year
  Sex: Female
  Weight: 60.3 kg

DRUGS (2)
  1. CRESTOR [Suspect]
     Route: 048
  2. EPIPEN [Concomitant]

REACTIONS (3)
  - DRUG DOSE OMISSION [None]
  - HYPERSENSITIVITY [None]
  - SENSATION OF FOREIGN BODY [None]
